FAERS Safety Report 6909814-7 (Version None)
Quarter: 2010Q3

REPORT INFORMATION
  Report Type: 
  Country: None (occurrence: None)
  Receive Date: 20100806
  Receipt Date: 20100729
  Transmission Date: 20110219
  Serious: No
  Sender: FDA-Public Use
  Company Number: US-BIOGENIDEC-2010BI022691

PATIENT
  Age: 26 Year
  Sex: Female

DRUGS (1)
  1. TYSABRI [Suspect]
     Indication: MULTIPLE SCLEROSIS
     Route: 042
     Dates: start: 20100429

REACTIONS (6)
  - COUGH [None]
  - ERYTHEMA [None]
  - FEELING HOT [None]
  - NASAL CONGESTION [None]
  - NAUSEA [None]
  - OROPHARYNGEAL PAIN [None]
